FAERS Safety Report 17279266 (Version 3)
Quarter: 2020Q3

REPORT INFORMATION
  Report Type: Report from Study
  Country: JP (occurrence: JP)
  Receive Date: 20200116
  Receipt Date: 20200210
  Transmission Date: 20201105
  Serious: Yes (Hospitalization)
  Sender: FDA-Public Use
  Company Number: JP-ALEXION PHARMACEUTICALS INC.-A202000193

PATIENT
  Age: 22 Year
  Sex: Male
  Weight: 64 kg

DRUGS (19)
  1. FOSRENOL [Concomitant]
     Active Substance: LANTHANUM CARBONATE
     Indication: CHRONIC KIDNEY DISEASE
     Dosage: 500 MG, TID
     Route: 048
     Dates: start: 20180219
  2. ALFACALCIDOL [Concomitant]
     Active Substance: ALFACALCIDOL
     Dosage: 1 ?G, QD
     Route: 048
     Dates: start: 20190722
  3. RAVULIZUMAB. [Suspect]
     Active Substance: RAVULIZUMAB
     Dosage: 3300 MG, UNK
     Route: 042
     Dates: start: 20191031
  4. REGPARA [Concomitant]
     Active Substance: CINACALCET HYDROCHLORIDE
     Dosage: 50 MG, QD
     Route: 048
     Dates: start: 20190402, end: 20191215
  5. FEBURIC [Concomitant]
     Active Substance: FEBUXOSTAT
     Indication: HYPERURICAEMIA
     Dosage: 10 MG, QD
     Route: 048
     Dates: start: 20160809
  6. ACUATIM [Concomitant]
     Active Substance: NADIFLOXACIN
     Indication: ACNE
     Dosage: ADEQUATE DOSE, BID
     Route: 061
     Dates: start: 20170622
  7. MINIHEPA [Concomitant]
     Indication: HAEMODIALYSIS
     Dosage: 2200 UNITS, TIW
     Route: 042
     Dates: start: 20180221
  8. REGPARA [Concomitant]
     Active Substance: CINACALCET HYDROCHLORIDE
     Indication: CHRONIC KIDNEY DISEASE
     Dosage: 25 MG, QD
     Route: 048
     Dates: start: 20180723
  9. EPOETIN ALFA [Concomitant]
     Active Substance: ERYTHROPOIETIN
     Indication: NEPHROGENIC ANAEMIA
     Dosage: 0.5 ML, TIW
     Route: 042
     Dates: start: 20190708
  10. RAVULIZUMAB. [Suspect]
     Active Substance: RAVULIZUMAB
     Dosage: UNK
     Route: 065
     Dates: start: 202001
  11. BIO?THREE [Concomitant]
     Active Substance: HERBALS
     Indication: INFECTION PROPHYLAXIS
     Dosage: 1 G, TID
     Route: 048
     Dates: start: 20170828
  12. RABEPRAZOLE SODIUM. [Concomitant]
     Active Substance: RABEPRAZOLE SODIUM
     Indication: PROPHYLAXIS AGAINST GASTROINTESTINAL ULCER
     Dosage: 10 MG, QD
     Route: 048
     Dates: start: 20171113
  13. RIONA [Concomitant]
     Active Substance: FERRIC CITRATE ANHYDROUS
     Indication: CHRONIC KIDNEY DISEASE
     Dosage: 250 MG, QD
     Route: 048
  14. RAVULIZUMAB. [Suspect]
     Active Substance: RAVULIZUMAB
     Indication: ATYPICAL HAEMOLYTIC URAEMIC SYNDROME
     Dosage: 2700 MG, UNK
     Route: 042
     Dates: start: 20170510
  15. HIRUDOID                           /00723701/ [Concomitant]
     Active Substance: PENTOSAN POLYSULFATE SODIUM
     Indication: DRY SKIN PROPHYLAXIS
     Dosage: ADEQUATE DOSE PRN
     Route: 061
     Dates: start: 20170809
  16. BAYASPIRIN [Concomitant]
     Active Substance: ASPIRIN
     Indication: THROMBOSIS PROPHYLAXIS
     Dosage: 100 MG, QD
     Route: 048
     Dates: start: 20171113
  17. FOSRENOL [Concomitant]
     Active Substance: LANTHANUM CARBONATE
     Dosage: 250 MG, TID
     Route: 048
     Dates: start: 20180423
  18. ALFACALCIDOL [Concomitant]
     Active Substance: ALFACALCIDOL
     Indication: CHRONIC KIDNEY DISEASE
     Dosage: 0.5 ?G, QD
     Route: 048
     Dates: start: 20190121
  19. REGPARA [Concomitant]
     Active Substance: CINACALCET HYDROCHLORIDE
     Dosage: 75 MG, QD
     Route: 048
     Dates: start: 20191216

REACTIONS (1)
  - Shunt stenosis [Recovered/Resolved]

NARRATIVE: CASE EVENT DATE: 20191231
